FAERS Safety Report 16047956 (Version 1)
Quarter: 2019Q1

REPORT INFORMATION
  Report Type: Spontaneous
  Country: GB (occurrence: GB)
  Receive Date: 20190307
  Receipt Date: 20190307
  Transmission Date: 20190418
  Serious: Yes (Other)
  Sender: FDA-Public Use
  Company Number: GB-TEVA-2019-GB-1019400

PATIENT
  Sex: Female

DRUGS (2)
  1. METHOTREXATE. [Suspect]
     Active Substance: METHOTREXATE
     Route: 058
     Dates: start: 1994
  2. ETANERCEPT [Suspect]
     Active Substance: ETANERCEPT
     Dates: start: 2008

REACTIONS (2)
  - Disease progression [Not Recovered/Not Resolved]
  - Anaphylactic reaction [Unknown]
